FAERS Safety Report 7899675-4 (Version None)
Quarter: 2011Q4

REPORT INFORMATION
  Report Type: 
  Country: None (occurrence: None)
  Receive Date: 20111107
  Receipt Date: 20110916
  Transmission Date: 20120403
  Serious: No
  Sender: FDA-Public Use
  Company Number: US-AMGEN-USASP2011047969

PATIENT
  Age: 57 Year
  Sex: Female

DRUGS (1)
  1. ENBREL [Suspect]
     Indication: RHEUMATOID ARTHRITIS
     Dosage: 50 MG, QWK
     Dates: start: 20101102

REACTIONS (8)
  - RESPIRATORY TRACT CONGESTION [None]
  - NERVE ROOT COMPRESSION [None]
  - COUGH [None]
  - PARANASAL SINUS HYPERSECRETION [None]
  - MUSCULAR WEAKNESS [None]
  - MUSCULOSKELETAL CHEST PAIN [None]
  - EYE PAIN [None]
  - INTERVERTEBRAL DISC PROTRUSION [None]
